FAERS Safety Report 8588696-4 (Version None)
Quarter: 2012Q3

REPORT INFORMATION
  Report Type: 
  Country: None (occurrence: None)
  Receive Date: 20120813
  Receipt Date: 20120808
  Transmission Date: 20120928
  Serious: Yes (Hospitalization)
  Sender: FDA-Public Use
  Company Number: PHHY2012CA055799

PATIENT
  Sex: Female

DRUGS (2)
  1. ZOLEDRONOC ACID [Suspect]
     Indication: OSTEOPOROSIS
     Route: 042
     Dates: start: 20100720
  2. ZOLEDRONOC ACID [Suspect]
     Route: 042
     Dates: start: 20110720

REACTIONS (2)
  - FALL [None]
  - OEDEMA PERIPHERAL [None]
